FAERS Safety Report 21691541 (Version 1)
Quarter: 2022Q4

REPORT INFORMATION
  Report Type: Spontaneous
  Country: GB (occurrence: GB)
  Receive Date: 20221207
  Receipt Date: 20221207
  Transmission Date: 20230113
  Serious: Yes (Other)
  Sender: FDA-Public Use
  Company Number: GB-SA-SAC20221206000092

PATIENT
  Sex: Female

DRUGS (1)
  1. DUPILUMAB [Suspect]
     Active Substance: DUPILUMAB
     Route: 065

REACTIONS (5)
  - Suicidal behaviour [Unknown]
  - Depression [Unknown]
  - Eczema [Unknown]
  - Skin disorder [Unknown]
  - Eye disorder [Unknown]
